FAERS Safety Report 7586140-7 (Version None)
Quarter: 2011Q3

REPORT INFORMATION
  Report Type: 
  Country: None (occurrence: None)
  Receive Date: 20110701
  Receipt Date: 20110524
  Transmission Date: 20111222
  Serious: Yes (Other)
  Sender: FDA-Public Use
  Company Number: US-BAYER-201026125NA

PATIENT
  Age: 32 Year
  Sex: Female
  Weight: 63 kg

DRUGS (8)
  1. VICODIN [Concomitant]
     Indication: MIGRAINE
     Dosage: AS NEEDED
     Route: 048
  2. ORAL CONTRACEPTIVE NOS [Concomitant]
  3. PROTONIX [Concomitant]
  4. NORCO [Concomitant]
  5. ALLEGRA [Concomitant]
  6. YASMIN [Suspect]
     Indication: PRODUCT USED FOR UNKNOWN INDICATION
     Dosage: UNK UNK, QD
     Route: 048
     Dates: start: 20090101, end: 20091201
  7. FIORICET [Concomitant]
  8. ALBUTEROL SULFATE AUTOHALER [Concomitant]

REACTIONS (2)
  - CHOLECYSTITIS [None]
  - GALLBLADDER DISORDER [None]
